FAERS Safety Report 4446478-9 (Version None)
Quarter: 2004Q3

REPORT INFORMATION
  Report Type: 
  Country: None (occurrence: None)
  Receive Date: 20040907
  Receipt Date: 20040823
  Transmission Date: 20050211
  Serious: Yes (Hospitalization, Other)
  Sender: FDA-Public Use
  Company Number: 2004035048

PATIENT
  Age: 61 Year
  Sex: Female

DRUGS (8)
  1. LIPITOR [Suspect]
     Indication: HYPERCHOLESTEROLAEMIA
     Dosage: (10 MG, 1 IN 1 D), ORAL
     Route: 048
     Dates: start: 20020701, end: 20040101
  2. ASPIRIN [Concomitant]
  3. CALCIUM WITH VITAMIN D (CALCIUM PHOSPHATE, CALCIUM SODIUM LACTATE, ERG [Concomitant]
  4. CENTRUM (MINERALS NOS, VITAMINS NOS) [Concomitant]
  5. TOCOPHEROL CONCENTRATE CAP [Concomitant]
  6. ACETAMINOPHEN [Concomitant]
  7. AMOXICILLIN [Concomitant]
  8. ESTROPIPATE [Concomitant]

REACTIONS (40)
  - ANAL CANCER STAGE III [None]
  - ANION GAP DECREASED [None]
  - ASPIRATION [None]
  - BACK PAIN [None]
  - BACTERIAL CULTURE POSITIVE [None]
  - BLOOD CHOLESTEROL INCREASED [None]
  - BLOOD FOLATE INCREASED [None]
  - BLOOD GLUCOSE INCREASED [None]
  - BLOOD SODIUM INCREASED [None]
  - BLOOD TEST ABNORMAL [None]
  - BLOOD UREA NITROGEN/CREATININE RATIO DECREASED [None]
  - BLOOD URINE [None]
  - CATHETER RELATED INFECTION [None]
  - CHOKING [None]
  - CONSTIPATION [None]
  - CRYPTOGENIC ORGANIZING PNEUMONIA [None]
  - DIVERTICULUM INTESTINAL [None]
  - DIZZINESS [None]
  - DRUG HYPERSENSITIVITY [None]
  - DYSURIA [None]
  - HEPATITIS [None]
  - HYPERAEMIA [None]
  - HYPERTROPHIC ANAL PAPILLA [None]
  - LIVER PALPABLE SUBCOSTAL [None]
  - LIVER TENDERNESS [None]
  - LUNG DISORDER [None]
  - LYMPHADENOPATHY [None]
  - MENOPAUSAL SYMPTOMS [None]
  - PARAESTHESIA [None]
  - PATHOGEN RESISTANCE [None]
  - PLATELET COUNT INCREASED [None]
  - PNEUMONIA [None]
  - PNEUMONIA PRIMARY ATYPICAL [None]
  - PNEUMONITIS [None]
  - RENAL FAILURE [None]
  - RHABDOMYOLYSIS [None]
  - STOMACH DISCOMFORT [None]
  - UPPER RESPIRATORY TRACT INFECTION [None]
  - VAGINAL CANCER [None]
  - WEIGHT INCREASED [None]
